FAERS Safety Report 4694867-X (Version None)
Quarter: 2005Q2

REPORT INFORMATION
  Report Type: 
  Country: None (occurrence: None)
  Receive Date: 20050617
  Receipt Date: 20050606
  Transmission Date: 20051028
  Serious: Yes (Disabling)
  Sender: FDA-Public Use
  Company Number: 2005-01226

PATIENT
  Age: 53 Year
  Sex: Female

DRUGS (2)
  1. VELCADE [Suspect]
     Indication: MULTIPLE MYELOMA
     Dosage: 1.30 MG/M2, UNK, UNK; 1.00 MG/M2, UNK, UNK
     Route: 065
     Dates: start: 20050101
  2. VELCADE [Suspect]
     Indication: MULTIPLE MYELOMA
     Dosage: 1.30 MG/M2, UNK, UNK; 1.00 MG/M2, UNK, UNK
     Route: 065
     Dates: start: 20050401

REACTIONS (2)
  - NEUROPATHY PERIPHERAL [None]
  - PERONEAL NERVE PALSY [None]
